FAERS Safety Report 5285457-9 (Version None)
Quarter: 2007Q1

REPORT INFORMATION
  Report Type: 
  Country: None (occurrence: None)
  Receive Date: 20070328
  Receipt Date: 20070322
  Transmission Date: 20070707
  Serious: Yes (Hospitalization)
  Sender: FDA-Public Use
  Company Number: 237010

PATIENT
  Age: 56 Year
  Sex: Female
  Weight: 107 kg

DRUGS (26)
  1. AVASTIN [Suspect]
     Indication: NON-SMALL CELL LUNG CANCER
     Dosage: 15 MG/KG, Q3W, INTRAVENOUS
     Route: 042
     Dates: start: 20070125
  2. GEMCITABINE [Suspect]
     Indication: NON-SMALL CELL LUNG CANCER
     Dosage: 1000 MG/KG, INTRAVENOUS
     Route: 042
     Dates: start: 20070206
  3. CARBOPLATIN [Suspect]
     Indication: NON-SMALL CELL LUNG CANCER
     Dosage: 541 MG, INTRAVENOUS
     Route: 042
     Dates: start: 20070130
  4. PREDNISONE TAB [Concomitant]
  5. NEXIUM [Concomitant]
  6. RANITIDINE [Concomitant]
  7. SYNTHROID [Concomitant]
  8. ADVAIR DISKUS 100/50 [Concomitant]
  9. SPIRIVA [Concomitant]
  10. INSULIN (INSULIN) [Concomitant]
  11. LEXAPRO [Concomitant]
  12. CELEBREX [Concomitant]
  13. HYCODAN (HOMATROPINE METHYLBROMIDE, HYDROCODONE BITARTRATE) [Concomitant]
  14. BISACODYL (BISACODYL) [Concomitant]
  15. VORICONAZOLE (VORICONAZOLE) [Concomitant]
  16. FORTEO [Concomitant]
  17. SINGULAIR [Concomitant]
  18. IPRATROPIUM BROMIDE NEBULIZER (IPRATROPIUM BROMIDE) [Concomitant]
  19. FLONASE [Concomitant]
  20. NYSTATIN [Concomitant]
  21. WELLBUTRIN XL [Concomitant]
  22. OXYCONTIN [Concomitant]
  23. LACTULOSE [Concomitant]
  24. LEVOFLOXACIN [Concomitant]
  25. AMPHOTERICIN (AMPHOTERICIN B) [Concomitant]
  26. CALCIUM CITRATE (CALCIUM CITRATE) [Concomitant]

REACTIONS (6)
  - ANAEMIA [None]
  - CONTUSION [None]
  - GASTROENTERITIS VIRAL [None]
  - INJURY [None]
  - MELAENA [None]
  - THROMBOCYTOPENIA [None]
